FAERS Safety Report 7673940-8 (Version None)
Quarter: 2011Q3

REPORT INFORMATION
  Report Type: 
  Country: None (occurrence: None)
  Receive Date: 20110810
  Receipt Date: 20110510
  Transmission Date: 20111222
  Serious: No
  Sender: FDA-Public Use
  Company Number: US-GLAXOSMITHKLINE-A0928037A

PATIENT
  Age: 34 Year
  Sex: Female

DRUGS (2)
  1. NONE [Concomitant]
  2. PAXIL [Suspect]
     Indication: ANXIETY
     Dosage: 20MG PER DAY
     Route: 048
     Dates: start: 20110413

REACTIONS (3)
  - ANXIETY [None]
  - DIARRHOEA [None]
  - SOMNOLENCE [None]
